FAERS Safety Report 11457893 (Version 1)
Quarter: 2015Q3

REPORT INFORMATION
  Report Type: Other
  Country: TR (occurrence: TR)
  Receive Date: 20150904
  Receipt Date: 20150904
  Transmission Date: 20151125
  Serious: Yes (Hospitalization)
  Sender: FDA-Public Use
  Company Number: TR-JUBILANT GENERICS LIMITED-1041634

PATIENT
  Age: 56 Year
  Sex: Female

DRUGS (1)
  1. DONEPEZIL HYDROCHLORIDE. [Suspect]
     Active Substance: DONEPEZIL HYDROCHLORIDE

REACTIONS (1)
  - Wandering pacemaker [Recovered/Resolved]

NARRATIVE: CASE EVENT DATE: 20150825
